FAERS Safety Report 8241269-5 (Version None)
Quarter: 2012Q1

REPORT INFORMATION
  Report Type: 
  Country: None (occurrence: None)
  Receive Date: 20120309
  Receipt Date: 20110303
  Transmission Date: 20120608
  Serious: Yes (Hospitalization)
  Sender: FDA-Public Use
  Company Number: PHHY2011US17900

PATIENT
  Age: 49 Year
  Sex: Female

DRUGS (1)
  1. EXTAVIA [Suspect]
     Dosage: 0.25 MG, QOD, SUBCUTANEOUS
     Route: 058
     Dates: start: 20101006, end: 20110225

REACTIONS (5)
  - MIGRAINE [None]
  - BALANCE DISORDER [None]
  - VOMITING [None]
  - DIZZINESS [None]
  - MULTIPLE SCLEROSIS RELAPSE [None]
